FAERS Safety Report 20427001 (Version 1)
Quarter: 2022Q1

REPORT INFORMATION
  Report Type: Spontaneous
  Country: US (occurrence: US)
  Receive Date: 20220204
  Receipt Date: 20220204
  Transmission Date: 20220424
  Serious: No
  Sender: FDA-Public Use
  Company Number: US-EXELIXIS-CABO-21046663

PATIENT
  Sex: Female

DRUGS (1)
  1. CABOMETYX [Suspect]
     Active Substance: CABOZANTINIB S-MALATE
     Indication: Renal cell carcinoma
     Dosage: 60 MG

REACTIONS (5)
  - Flatulence [Unknown]
  - Abnormal faeces [Unknown]
  - Oral discomfort [Unknown]
  - Tongue discomfort [Unknown]
  - Diarrhoea [Unknown]
